FAERS Safety Report 9809301 (Version 1)
Quarter: 2014Q1

REPORT INFORMATION
  Report Type: Spontaneous
  Country: US (occurrence: US)
  Receive Date: 20140110
  Receipt Date: 20140110
  Transmission Date: 20141002
  Serious: Yes (Hospitalization, Other)
  Sender: FDA-Public Use
  Company Number: US-ELI_LILLY_AND_COMPANY-US201312009171

PATIENT
  Sex: Male

DRUGS (2)
  1. HUMALOG LISPRO [Suspect]
     Indication: DIABETES MELLITUS
     Dosage: UNK
     Route: 065
  2. LEVEMIR [Concomitant]

REACTIONS (4)
  - Hypertension [Unknown]
  - Hypertension [Unknown]
  - Blood glucose increased [Unknown]
  - Drug effect decreased [Unknown]
